FAERS Safety Report 18223929 (Version 1)
Quarter: 2020Q3

REPORT INFORMATION
  Report Type: Spontaneous
  Country: JP (occurrence: JP)
  Receive Date: 20200902
  Receipt Date: 20200902
  Transmission Date: 20201103
  Serious: Yes (Hospitalization)
  Sender: FDA-Public Use
  Company Number: JP-MYLANLABS-2020M1076456

PATIENT
  Age: 77 Year
  Sex: Female
  Weight: 52 kg

DRUGS (11)
  1. EPALRESTAT [Suspect]
     Active Substance: EPALRESTAT
     Indication: DIABETES MELLITUS
     Dosage: 50 MILLIGRAM, QD
     Route: 048
  2. RHUBARB. [Concomitant]
     Active Substance: RHUBARB
     Dosage: 2.5 GRAM
  3. PURSENNID                          /00571902/ [Suspect]
     Active Substance: SENNOSIDES A AND B
     Indication: CONSTIPATION
     Dosage: 48 MILLIGRAM, QD
     Route: 048
  4. LUBIPROSTONE [Suspect]
     Active Substance: LUBIPROSTONE
     Indication: CONSTIPATION
     Dosage: 48 MICROGRAM, QD
     Route: 048
  5. MAGNESIUM SULFATE MYLAN [Suspect]
     Active Substance: MAGNESIUM SULFATE
     Indication: CONSTIPATION
     Dosage: 2 GRAM, QD
     Route: 048
  6. GLIMEPIRIDE. [Suspect]
     Active Substance: GLIMEPIRIDE
     Indication: DIABETES MELLITUS
     Dosage: 1 MILLIGRAM, QD
     Route: 048
  7. VALSARTAN. [Suspect]
     Active Substance: VALSARTAN
     Indication: HYPERTENSION
     Dosage: 160 MILLIGRAM, QD
     Route: 048
  8. TANATRIL [Suspect]
     Active Substance: IMIDAPRIL
     Indication: HYPERTENSION
     Dosage: 5 MILLIGRAM, QD
     Route: 048
  9. RHUBARB. [Concomitant]
     Active Substance: RHUBARB
     Dosage: 1 GRAM
  10. METFORMIN [Suspect]
     Active Substance: METFORMIN HYDROCHLORIDE
     Indication: DIABETES MELLITUS
     Dosage: 250 MILLIGRAM, QD
     Route: 048
  11. THYRADIN?S [Suspect]
     Active Substance: LEVOTHYROXINE
     Indication: HYPOTHYROIDISM
     Dosage: 50 MICROGRAM, QD
     Route: 048

REACTIONS (10)
  - Faeces discoloured [Unknown]
  - Decreased appetite [Unknown]
  - Abdominal distension [Unknown]
  - Malaise [Unknown]
  - Diarrhoea [Unknown]
  - Feeling cold [Unknown]
  - Oral discomfort [Unknown]
  - Flatulence [Unknown]
  - Hyperhidrosis [Unknown]
  - Abdominal discomfort [Unknown]
